FAERS Safety Report 5346222-7 (Version None)
Quarter: 2007Q2

REPORT INFORMATION
  Report Type: 
  Country: None (occurrence: None)
  Receive Date: 20070605
  Receipt Date: 20070530
  Transmission Date: 20071010
  Serious: Yes (Hospitalization, Disabling)
  Sender: FDA-Public Use
  Company Number: US-SANOFI-SYNTHELABO-A03200703424

PATIENT
  Sex: Female

DRUGS (2)
  1. AMBIEN [Suspect]
     Indication: INSOMNIA
     Dosage: 20 MG EVERY NIGHT AT LEAST 5 DAYS A WEEK
     Route: 048
     Dates: start: 20061001, end: 20070101
  2. TYLENOL [Concomitant]
     Dosage: UNK
     Route: 048

REACTIONS (9)
  - AMNESIA [None]
  - BELLIGERENCE [None]
  - DEPRESSION [None]
  - DRUG ABUSER [None]
  - IMPAIRED DRIVING ABILITY [None]
  - SLEEP TALKING [None]
  - SLEEP WALKING [None]
  - SUICIDAL IDEATION [None]
  - THERAPEUTIC RESPONSE PROLONGED [None]
